FAERS Safety Report 12121685 (Version 1)
Quarter: 2016Q1

REPORT INFORMATION
  Report Type: Spontaneous
  Country: US (occurrence: US)
  Receive Date: 20160226
  Receipt Date: 20160226
  Transmission Date: 20160526
  Serious: No
  Sender: FDA-Public Use
  Company Number: US-ALLERGAN-1209725US

PATIENT
  Age: 77 Year
  Sex: Female

DRUGS (3)
  1. REFRESH OPTIVE [Suspect]
     Active Substance: CARBOXYMETHYLCELLULOSE SODIUM\GLYCERIN
     Indication: VISION BLURRED
  2. REFRESH OPTIVE [Suspect]
     Active Substance: CARBOXYMETHYLCELLULOSE SODIUM\GLYCERIN
     Indication: EYE IRRITATION
     Dosage: ONCE A DAY
     Route: 047
  3. REFRESH OPTIVE [Suspect]
     Active Substance: CARBOXYMETHYLCELLULOSE SODIUM\GLYCERIN
     Indication: DRY EYE
     Dosage: 3 TO 4 TIMES A DAY
     Route: 047
     Dates: end: 201207

REACTIONS (3)
  - Madarosis [Not Recovered/Not Resolved]
  - Eye irritation [Recovered/Resolved]
  - Abnormal sensation in eye [Recovered/Resolved]
